FAERS Safety Report 12762277 (Version 1)
Quarter: 2016Q3

REPORT INFORMATION
  Report Type: Spontaneous
  Country: US (occurrence: US)
  Receive Date: 20160920
  Receipt Date: 20160920
  Transmission Date: 20161109
  Serious: Yes (Other)
  Sender: FDA-Public Use
  Company Number: US-GLAXOSMITHKLINE-US2016133245

PATIENT
  Age: 71 Year
  Sex: Female

DRUGS (7)
  1. SPIRIVA [Concomitant]
     Active Substance: TIOTROPIUM BROMIDE MONOHYDRATE
  2. ADVAIR DISKUS [Suspect]
     Active Substance: FLUTICASONE PROPIONATE\SALMETEROL XINAFOATE
     Indication: EMPHYSEMA
     Dosage: 500/50 UG
     Dates: start: 201609
  3. CARDIA [Concomitant]
     Active Substance: AJMALINE
  4. LASIX [Concomitant]
     Active Substance: FUROSEMIDE
  5. ASPIRIN (BABY) [Concomitant]
     Active Substance: ASPIRIN
  6. VENTOLIN HFA [Suspect]
     Active Substance: ALBUTEROL SULFATE
     Indication: CHRONIC OBSTRUCTIVE PULMONARY DISEASE
     Dosage: UNK
     Dates: start: 2011
  7. ADVAIR DISKUS [Suspect]
     Active Substance: FLUTICASONE PROPIONATE\SALMETEROL XINAFOATE
     Indication: CHRONIC OBSTRUCTIVE PULMONARY DISEASE
     Dosage: UNK
     Route: 055
     Dates: start: 2011

REACTIONS (11)
  - Heart rate increased [Not Recovered/Not Resolved]
  - Coronary artery occlusion [Unknown]
  - Drug ineffective [Not Recovered/Not Resolved]
  - Pleural effusion [Not Recovered/Not Resolved]
  - Pneumonia [Recovering/Resolving]
  - Nasopharyngitis [Not Recovered/Not Resolved]
  - Drug dose omission [Unknown]
  - Oxygen saturation decreased [Not Recovered/Not Resolved]
  - Pericardial effusion [Not Recovered/Not Resolved]
  - Dysphonia [Unknown]
  - Dyspnoea [Unknown]

NARRATIVE: CASE EVENT DATE: 201501
